FAERS Safety Report 8771378 (Version 2)
Quarter: 2012Q4

REPORT INFORMATION
  Report Type: 
  Country: US (occurrence: US)
  Receive Date: 20120906
  Receipt Date: 20120925
  Transmission Date: 20130627
  Serious: Yes (Other)
  Sender: FDA-Public Use
  Company Number: US-GLAXOSMITHKLINE-A0991605A

PATIENT
  Age: 53 Year
  Sex: Female
  Weight: 77.3 kg

DRUGS (5)
  1. LAMICTAL [Suspect]
     Indication: BIPOLAR DISORDER
     Dosage: 50MG Per day
     Route: 048
     Dates: start: 20120802, end: 20120829
  2. EFFEXOR [Concomitant]
  3. HYDROCHLOROTHIAZIDE [Concomitant]
  4. ATIVAN [Concomitant]
  5. AMBIEN [Concomitant]

REACTIONS (6)
  - Ulcerative keratitis [Recovering/Resolving]
  - Hyperaesthesia [Recovering/Resolving]
  - Oesophageal neoplasm [Recovering/Resolving]
  - Lymphadenopathy [Recovering/Resolving]
  - Corneal lesion [Recovering/Resolving]
  - C-reactive protein increased [Unknown]
